FAERS Safety Report 17446674 (Version 1)
Quarter: 2020Q1

REPORT INFORMATION
  Report Type: Spontaneous
  Country: AU (occurrence: AU)
  Receive Date: 20200221
  Receipt Date: 20200221
  Transmission Date: 20200409
  Serious: Yes (Other)
  Sender: FDA-Public Use
  Company Number: AU-UCBSA-2020007134

PATIENT
  Age: 32 Year
  Sex: Female

DRUGS (9)
  1. ZONISAMIDE. [Suspect]
     Active Substance: ZONISAMIDE
     Indication: SEIZURE
     Dosage: 25 MILLIGRAM, 2X/DAY (BID)
  2. SODIUM VALPROATE [Suspect]
     Active Substance: VALPROATE SODIUM
     Indication: SEIZURE
     Dosage: 1.5 MILLIGRAM, 2X/DAY (BID)
  3. PROCARBAZINE [Concomitant]
     Active Substance: PROCARBAZINE
     Indication: OLIGODENDROGLIOMA
     Dosage: UNKNOWN DOSE
  4. VINCRISTINE [Concomitant]
     Active Substance: VINCRISTINE
     Indication: OLIGODENDROGLIOMA
     Dosage: UNKNOWN DOSE
  5. TEMOZOLOMIDE. [Concomitant]
     Active Substance: TEMOZOLOMIDE
     Indication: OLIGODENDROGLIOMA
     Dosage: UNKNOWN DOSE
  6. LEVETIRACETAM. [Suspect]
     Active Substance: LEVETIRACETAM
     Indication: SEIZURE
     Dosage: 1.5 GRAM, 2X/DAY (BID)
  7. LOMUSTINE. [Concomitant]
     Active Substance: LOMUSTINE
     Indication: OLIGODENDROGLIOMA
     Dosage: UNKNOWN DOSE
  8. DEXAMETHASONE. [Concomitant]
     Active Substance: DEXAMETHASONE
     Indication: OLIGODENDROGLIOMA
     Dosage: 4-8 MG PER DAY
  9. PERAMPANEL [Suspect]
     Active Substance: PERAMPANEL
     Indication: SEIZURE
     Dosage: 2 MILLIGRAM, ONCE DAILY (QD)

REACTIONS (2)
  - Seizure [Unknown]
  - Multiple-drug resistance [Unknown]
